FAERS Safety Report 7526006-1 (Version None)
Quarter: 2011Q2

REPORT INFORMATION
  Report Type: 
  Country: None (occurrence: None)
  Receive Date: 20110526
  Receipt Date: 20110520
  Transmission Date: 20111010
  Serious: Yes (Hospitalization)
  Sender: FDA-Public Use
  Company Number: CIP11000798

PATIENT
  Age: 91 Year
  Sex: Female

DRUGS (8)
  1. FLUITRAN (TRICHLORMETHIAZIDE) [Concomitant]
  2. BISOPROLOL FUMARATE [Concomitant]
  3. DOXAZOSIN MESYLATE [Concomitant]
  4. ADALAT [Concomitant]
  5. OLMESARTAN MEDOXOMIL [Concomitant]
  6. ACTONEL [Suspect]
     Indication: OSTEOPOROSIS
     Dosage: 2.5 MG, DAILY, ORAL
     Route: 048
     Dates: start: 20080305, end: 20110308
  7. CALCIUM + VITAMIN D (CALCIUM, COLECALICIFEROL) [Concomitant]
  8. PRAVASTATIN [Concomitant]

REACTIONS (6)
  - POST PROCEDURAL HAEMATOMA [None]
  - SQUAMOUS CELL CARCINOMA [None]
  - POST PROCEDURAL COMPLICATION [None]
  - HAEMORRHAGE SUBCUTANEOUS [None]
  - INJECTION SITE HAEMORRHAGE [None]
  - CORONARY ARTERY STENOSIS [None]
